FAERS Safety Report 5933703-8 (Version None)
Quarter: 2008Q4

REPORT INFORMATION
  Report Type: 
  Country: None (occurrence: None)
  Receive Date: 20081029
  Receipt Date: 20081021
  Transmission Date: 20090506
  Serious: Yes (Other)
  Sender: FDA-Public Use
  Company Number: JP-BRISTOL-MYERS SQUIBB COMPANY-14385678

PATIENT
  Age: 34 Year
  Sex: Male

DRUGS (2)
  1. ABILIFY [Suspect]
     Indication: SCHIZOPHRENIA
     Dosage: (15MG IN THE MORNING AND 6MG IN THE EVENING)
     Route: 048
     Dates: start: 20081016, end: 20081018
  2. FLUNITRAZEPAM [Concomitant]
     Dates: start: 20081016, end: 20081018

REACTIONS (1)
  - HICCUPS [None]
